APPROVED DRUG PRODUCT: FAMOTIDINE
Active Ingredient: FAMOTIDINE
Strength: 10MG
Dosage Form/Route: TABLET;ORAL
Application: A075312 | Product #001
Applicant: TEVA PHARMACEUTICALS USA INC
Approved: May 31, 2001 | RLD: No | RS: No | Type: DISCN